FAERS Safety Report 4965681-2 (Version None)
Quarter: 2006Q2

REPORT INFORMATION
  Report Type: 
  Country: None (occurrence: None)
  Receive Date: 20060407
  Receipt Date: 20060329
  Transmission Date: 20061013
  Serious: Yes (Hospitalization)
  Sender: FDA-Public Use
  Company Number: JP-ABBOTT-06P-087-0329595-00

PATIENT
  Age: 33 Year
  Sex: Female
  Weight: 58 kg

DRUGS (7)
  1. CLARITHROMYCIN [Suspect]
     Indication: MYCOPLASMA INFECTION
     Route: 048
     Dates: start: 20051202
  2. FLUTICASONE PROPIONATE [Concomitant]
     Indication: DRUG USE FOR UNKNOWN INDICATION
     Route: 055
     Dates: start: 20051122, end: 20051201
  3. SALMETEROL XINAFOATE [Concomitant]
     Indication: DRUG USE FOR UNKNOWN INDICATION
     Route: 055
     Dates: start: 20051126, end: 20051201
  4. HUSCODE [Concomitant]
     Indication: DRUG USE FOR UNKNOWN INDICATION
     Route: 048
     Dates: start: 20051202, end: 20051215
  5. FERROUS CITRATE [Concomitant]
     Indication: DRUG USE FOR UNKNOWN INDICATION
     Route: 048
     Dates: start: 20051202
  6. THEOPHYLLINE [Concomitant]
     Indication: DRUG USE FOR UNKNOWN INDICATION
     Route: 048
     Dates: start: 20051209, end: 20051215
  7. TULOBUTEROL [Concomitant]
     Indication: DRUG USE FOR UNKNOWN INDICATION
     Route: 061
     Dates: start: 20051209

REACTIONS (1)
  - EOSINOPHILIC PNEUMONIA [None]
